FAERS Safety Report 5973516-4 (Version None)
Quarter: 2008Q4

REPORT INFORMATION
  Report Type: 
  Country: None (occurrence: None)
  Receive Date: 20081201
  Receipt Date: 20081119
  Transmission Date: 20090506
  Serious: Yes (Other)
  Sender: FDA-Public Use
  Company Number: FR-AVENTIS-200814079FR

PATIENT
  Age: 81 Year
  Sex: Female

DRUGS (13)
  1. FLAGYL [Suspect]
     Route: 042
     Dates: start: 20080820, end: 20080826
  2. ROCEPHIN [Suspect]
     Route: 042
     Dates: start: 20080821, end: 20080827
  3. LERCAN [Concomitant]
     Route: 048
  4. DI-ANTALVIC                        /00220901/ [Concomitant]
     Route: 048
  5. LIBRAX                             /00033301/ [Concomitant]
  6. LEXOMIL [Concomitant]
     Route: 048
  7. SPASFON                            /00934601/ [Concomitant]
     Route: 048
  8. MOPRAL [Concomitant]
     Route: 048
  9. GAVISCON [Concomitant]
     Route: 048
  10. SPAGULAX [Concomitant]
     Route: 048
  11. CALCIPARINE [Concomitant]
     Route: 058
  12. LOVENOX [Concomitant]
     Route: 058
     Dates: start: 20080819, end: 20080826
  13. AUGMENTIN '125' [Concomitant]
     Dates: start: 20080820, end: 20080821

REACTIONS (1)
  - THROMBOCYTOPENIA [None]
